FAERS Safety Report 8345134 (Version 2)
Quarter: 2013Q1

REPORT INFORMATION
  Report Type: Spontaneous
  Country: US (occurrence: None)
  Receive Date: 20120109
  Receipt Date: 20130222
  Transmission Date: 20140127
  Serious: Yes (Other)
  Sender: FDA-Public Use
  Company Number: ACO_28450_2011

PATIENT
  Age: 23 Year
  Sex: Male

DRUGS (2)
  1. AMPYRA [Suspect]
     Indication: MULTIPLE SCLEROSIS
     Dates: start: 201101
  2. TYSABRI [Concomitant]

REACTIONS (3)
  - Paraesthesia [None]
  - Hypoaesthesia [None]
  - Convulsion [None]
